FAERS Safety Report 12961822 (Version 1)
Quarter: 2016Q4

REPORT INFORMATION
  Report Type: Spontaneous
  Country: BE (occurrence: BE)
  Receive Date: 20161121
  Receipt Date: 20161121
  Transmission Date: 20170207
  Serious: Yes (Other)
  Sender: FDA-Public Use
  Company Number: BE-PFIZER INC-2016539408

PATIENT
  Age: 52 Year
  Sex: Male
  Weight: 80 kg

DRUGS (5)
  1. AMLOR [Suspect]
     Active Substance: AMLODIPINE BESYLATE
     Indication: MALAISE
     Dosage: 5 MG, 1X/DAY
     Route: 048
     Dates: start: 20161019
  2. BISOPROLOL [Concomitant]
     Active Substance: BISOPROLOL
     Indication: MALAISE
     Dosage: 2.5 MG, 1X/DAY
     Dates: start: 20161019
  3. LIPITOR [Concomitant]
     Active Substance: ATORVASTATIN CALCIUM
     Indication: MALAISE
     Dosage: 20 MG, 1X/DAY
     Dates: start: 20161019
  4. LOSARTAN. [Concomitant]
     Active Substance: LOSARTAN
     Indication: MALAISE
     Dosage: 100 MG, 1X/DAY
     Dates: start: 20161019
  5. ASAFLOW [Concomitant]
     Active Substance: ASPIRIN
     Indication: MALAISE
     Dosage: 80 MG, 1X/DAY
     Dates: start: 20161019

REACTIONS (8)
  - Peripheral coldness [Unknown]
  - Obstruction gastric [Unknown]
  - Vertigo [Unknown]
  - Fatigue [Unknown]
  - Blood pressure decreased [Unknown]
  - Visual field defect [Unknown]
  - Malaise [Unknown]
  - Disturbance in attention [Unknown]

NARRATIVE: CASE EVENT DATE: 20161021
